FAERS Safety Report 10991282 (Version 3)
Quarter: 2015Q2

REPORT INFORMATION
  Report Type: Spontaneous
  Country: US (occurrence: US)
  Receive Date: 20150406
  Receipt Date: 20150428
  Transmission Date: 20150821
  Serious: No
  Sender: FDA-Public Use
  Company Number: US-SHIRE-US201503003

PATIENT
  Sex: Male
  Weight: 68.93 kg

DRUGS (6)
  1. VYVANSE [Suspect]
     Active Substance: LISDEXAMFETAMINE DIMESYLATE
     Dosage: 40 MG, 1X/DAY:QD
     Route: 048
     Dates: start: 20150401, end: 20150402
  2. VYVANSE [Suspect]
     Active Substance: LISDEXAMFETAMINE DIMESYLATE
     Indication: ATTENTION DEFICIT/HYPERACTIVITY DISORDER
     Dosage: 30 MG, 1X/DAY:QD
     Route: 048
     Dates: start: 20130823, end: 201406
  3. VYVANSE [Suspect]
     Active Substance: LISDEXAMFETAMINE DIMESYLATE
     Dosage: 30 MG, 1X/DAY:QD
     Route: 048
     Dates: start: 20150403, end: 20150413
  4. VYVANSE [Suspect]
     Active Substance: LISDEXAMFETAMINE DIMESYLATE
     Dosage: 30 MG, 1X/DAY:QD
     Route: 048
     Dates: start: 201411, end: 201503
  5. VYVANSE [Suspect]
     Active Substance: LISDEXAMFETAMINE DIMESYLATE
     Dosage: UNK UNK, UNKNOWN
     Route: 048
     Dates: start: 20150316, end: 2015
  6. VYVANSE [Suspect]
     Active Substance: LISDEXAMFETAMINE DIMESYLATE
     Dosage: 30 MG, 1X/DAY:QD
     Route: 048
     Dates: start: 201409, end: 201409

REACTIONS (5)
  - Sluggishness [Recovered/Resolved]
  - Somnolence [Recovered/Resolved]
  - Decreased appetite [Recovered/Resolved]
  - Insomnia [Recovered/Resolved]
  - Fatigue [Recovered/Resolved]

NARRATIVE: CASE EVENT DATE: 2013
